FAERS Safety Report 22108796 (Version 2)
Quarter: 2023Q2

REPORT INFORMATION
  Report Type: Spontaneous
  Country: US (occurrence: US)
  Receive Date: 20230317
  Receipt Date: 20230414
  Transmission Date: 20230722
  Serious: Yes (Other)
  Sender: FDA-Public Use
  Company Number: US-LEO Pharma-350124

PATIENT
  Age: 63 Year
  Sex: Female
  Weight: 55 kg

DRUGS (30)
  1. xiidra 5 % droperette [Concomitant]
     Indication: Product used for unknown indication
  2. BENZONATATE [Concomitant]
     Active Substance: BENZONATATE
     Indication: Product used for unknown indication
  3. melatonin 5 mg tablet [Concomitant]
     Indication: Product used for unknown indication
  4. OFEV [Concomitant]
     Active Substance: NINTEDANIB
     Indication: Product used for unknown indication
  5. alendronate sodium 35 mg tablet [Concomitant]
     Indication: Product used for unknown indication
  6. comirnaty 30 mcg/0.3 vial [Concomitant]
     Indication: Product used for unknown indication
  7. ADBRY [Suspect]
     Active Substance: TRALOKINUMAB-LDRM
     Indication: Dermatitis atopic
     Dosage: 4 INJECTIONS FOR THE INITIAL DOSE, ONCE
     Route: 058
  8. ADBRY [Suspect]
     Active Substance: TRALOKINUMAB-LDRM
     Indication: Dermatitis atopic
     Dosage: 4 INJECTIONS FOR THE INITIAL DOSE, ONCE
     Route: 058
  9. ADBRY [Suspect]
     Active Substance: TRALOKINUMAB-LDRM
     Indication: Dermatitis atopic
     Dosage: 4 INJECTIONS FOR THE INITIAL DOSE, ONCE
     Route: 058
  10. ADBRY [Suspect]
     Active Substance: TRALOKINUMAB-LDRM
     Indication: Dermatitis atopic
     Dosage: 4 INJECTIONS FOR THE INITIAL DOSE, ONCE
     Route: 058
  11. ADBRY [Suspect]
     Active Substance: TRALOKINUMAB-LDRM
     Indication: Dermatitis atopic
     Dosage: 2 INJECTIONS EVERY OTHER WEEK
     Route: 058
  12. ADBRY [Suspect]
     Active Substance: TRALOKINUMAB-LDRM
     Indication: Dermatitis atopic
     Dosage: 2 INJECTIONS EVERY OTHER WEEK
     Route: 058
  13. ADBRY [Suspect]
     Active Substance: TRALOKINUMAB-LDRM
     Indication: Dermatitis atopic
     Dosage: 2 INJECTIONS EVERY OTHER WEEK
     Route: 058
  14. ADBRY [Suspect]
     Active Substance: TRALOKINUMAB-LDRM
     Indication: Dermatitis atopic
     Dosage: 2 INJECTIONS EVERY OTHER WEEK
     Route: 058
  15. DEVICE [Suspect]
     Active Substance: DEVICE
     Indication: Dermatitis atopic
  16. omeprazole 40 mg capsule DR [Concomitant]
     Indication: Product used for unknown indication
  17. emgality pen 120 mg/ml pen injctr [Concomitant]
     Indication: Product used for unknown indication
  18. ALBUTEROL SULFATE [Concomitant]
     Active Substance: ALBUTEROL SULFATE
     Indication: Product used for unknown indication
  19. ropinirole HCl 0.5 mg tablet [Concomitant]
     Indication: Product used for unknown indication
  20. SINGULAIR [Concomitant]
     Active Substance: MONTELUKAST SODIUM
     Indication: Product used for unknown indication
  21. clonazepam 1 mg tablet [Concomitant]
     Indication: Product used for unknown indication
  22. ropinirole HCl 1 mg tablet [Concomitant]
     Indication: Product used for unknown indication
  23. trelegy ellipta 200-62.5 blst w/dev [Concomitant]
     Indication: Product used for unknown indication
  24. FOSAMAX [Concomitant]
     Active Substance: ALENDRONATE SODIUM
     Indication: Osteopenia
  25. QNASL 80 mcg HFA AER AD [Concomitant]
     Indication: Product used for unknown indication
  26. mucinex 600 mg tab ER 12h [Concomitant]
     Indication: Product used for unknown indication
  27. lunesta 3 mg tablet [Concomitant]
     Indication: Product used for unknown indication
  28. ALBUTEROL SULFATE [Concomitant]
     Active Substance: ALBUTEROL SULFATE
     Indication: Product used for unknown indication
  29. oxcarbazepine 600 mg tablet [Concomitant]
     Indication: Product used for unknown indication
  30. trokendi XR 200 mg cap ER 24h [Concomitant]
     Indication: Product used for unknown indication

REACTIONS (1)
  - Hip fracture [Unknown]

NARRATIVE: CASE EVENT DATE: 20221201
